FAERS Safety Report 10234568 (Version 1)
Quarter: 2014Q2

REPORT INFORMATION
  Report Type: Spontaneous
  Country: CA (occurrence: CA)
  Receive Date: 20140613
  Receipt Date: 20140613
  Transmission Date: 20141212
  Serious: Yes (Death, Hospitalization)
  Sender: FDA-Public Use
  Company Number: CA-AMGEN-CANSP2014043204

PATIENT
  Age: 49 Year
  Sex: Female

DRUGS (1)
  1. SENSIPAR [Suspect]
     Indication: RENAL FAILURE CHRONIC
     Dosage: 180 MG, UNK
     Route: 065
     Dates: start: 20100819, end: 201401

REACTIONS (1)
  - Fracture [Fatal]
